FAERS Safety Report 5583347-5 (Version None)
Quarter: 2008Q1

REPORT INFORMATION
  Report Type: 
  Country: None (occurrence: None)
  Receive Date: 20080107
  Receipt Date: 20071226
  Transmission Date: 20080703
  Serious: Yes (Other)
  Sender: FDA-Public Use
  Company Number: US-PFIZER INC-2007094022

PATIENT

DRUGS (2)
  1. MAXALT [Suspect]
  2. NARCAN [Interacting]

REACTIONS (3)
  - CONVULSION [None]
  - DRUG INTERACTION [None]
  - ELECTROCARDIOGRAM T WAVE INVERSION [None]
